FAERS Safety Report 8961519 (Version 2)
Quarter: 2014Q3

REPORT INFORMATION
  Report Type: Spontaneous
  Country: US (occurrence: US)
  Receive Date: 20121213
  Receipt Date: 20140730
  Transmission Date: 20150326
  Serious: Yes (Hospitalization)
  Sender: FDA-Public Use
  Company Number: US-BAYER-2012-129724

PATIENT
  Age: 38 Year
  Sex: Female
  Weight: 54.42 kg

DRUGS (9)
  1. ALBUTEROL. [Concomitant]
     Active Substance: ALBUTEROL
     Dosage: 1 PUFF(S), UNK
     Route: 045
  2. YAZ [Suspect]
     Active Substance: DROSPIRENONE\ETHINYL ESTRADIOL
     Dosage: UNK
     Dates: start: 20120629, end: 20121001
  3. MOBIC [Concomitant]
     Active Substance: MELOXICAM
     Dosage: 15 MG, DAILY
     Route: 048
  4. VALTREX [Concomitant]
     Active Substance: VALACYCLOVIR HYDROCHLORIDE
     Dosage: 500 MG, DAILY
     Route: 048
     Dates: start: 20120611, end: 20120913
  5. TYLENOL WITH CODEINE [Concomitant]
     Active Substance: ACETAMINOPHEN\CODEINE PHOSPHATE
     Dosage: 2 TABLETS EVERY 6 HOURS AS NEEDED
     Route: 048
  6. RESPIRATORY SYSTEM [Concomitant]
     Active Substance: UNSPECIFIED INGREDIENT
     Dosage: 5 MG, DAILY
     Route: 048
  7. SINGULAIR [Concomitant]
     Active Substance: MONTELUKAST SODIUM
     Dosage: 10 MG, HS
     Route: 048
     Dates: start: 20120925
  8. VIBRAMYCIN [Concomitant]
     Active Substance: DOXYCYCLINE
     Dosage: 100 MG, BID
     Route: 048
     Dates: start: 20120927, end: 20121001
  9. PAXIL [Concomitant]
     Active Substance: PAROXETINE HYDROCHLORIDE
     Dosage: 30 MG, DAILY
     Route: 048
     Dates: start: 20120809, end: 20121002

REACTIONS (4)
  - Emotional distress [None]
  - Pulmonary embolism [Recovering/Resolving]
  - Injury [Recovering/Resolving]
  - Deep vein thrombosis [None]

NARRATIVE: CASE EVENT DATE: 20121001
